FAERS Safety Report 4781018-6 (Version None)
Quarter: 2005Q3

REPORT INFORMATION
  Report Type: 
  Country: None (occurrence: None)
  Receive Date: 20050926
  Receipt Date: 20050912
  Transmission Date: 20060218
  Serious: Yes (Hospitalization, Other)
  Sender: FDA-Public Use
  Company Number: L05-JPN-03326-01

PATIENT
  Age: 43 Year
  Sex: Female

DRUGS (9)
  1. CARBAMAZEPINE [Suspect]
     Dates: start: 20030506, end: 20030522
  2. AMOBARBITAL [Suspect]
     Indication: ANXIETY
     Dates: start: 20030502, end: 20030522
  3. AMOBARBITAL [Suspect]
     Indication: CONFUSIONAL STATE
     Dates: start: 20030502, end: 20030522
  4. BROMOVALERYLUREA (BROMVALERYLUREA) [Suspect]
     Indication: ANXIETY
     Dates: start: 20030502, end: 20030522
  5. BROMOVALERYLUREA (BROMVALERYLUREA) [Suspect]
     Indication: CONFUSIONAL STATE
     Dates: start: 20030502, end: 20030522
  6. HALOPERIDOL [Concomitant]
  7. PAROXETINE HCL [Concomitant]
  8. LEVOMEPROMAZINE [Concomitant]
  9. CHLORPROMAZINE [Concomitant]

REACTIONS (10)
  - COMPLEMENT FACTOR C3 INCREASED [None]
  - COMPLEMENT FACTOR INCREASED [None]
  - DISEASE RECURRENCE [None]
  - DRUG HYPERSENSITIVITY [None]
  - EOSINOPHILIA [None]
  - ERYTHEMA MULTIFORME [None]
  - HEPATITIS [None]
  - HUMAN HERPES VIRUS 6 SEROLOGY POSITIVE [None]
  - HYPOGAMMAGLOBULINAEMIA [None]
  - HYPOPROTEINAEMIA [None]
